FAERS Safety Report 18627130 (Version 1)
Quarter: 2020Q4

REPORT INFORMATION
  Report Type: Report from Study
  Country: AR (occurrence: AR)
  Receive Date: 20201217
  Receipt Date: 20201217
  Transmission Date: 20210114
  Serious: Yes (Hospitalization, Other)
  Sender: FDA-Public Use
  Company Number: NVSC2020AR319518

PATIENT
  Age: 21 Year
  Sex: Female

DRUGS (1)
  1. GILENYA [Suspect]
     Active Substance: FINGOLIMOD HYDROCHLORIDE
     Indication: MULTIPLE SCLEROSIS
     Dosage: 0.5 MG, QD
     Route: 048
     Dates: start: 20181002, end: 20191201

REACTIONS (4)
  - Tongue disorder [Recovering/Resolving]
  - Multiple sclerosis relapse [Recovering/Resolving]
  - Therapy non-responder [Unknown]
  - Language disorder [Recovering/Resolving]

NARRATIVE: CASE EVENT DATE: 202001
